FAERS Safety Report 5339740-9 (Version None)
Quarter: 2007Q2

REPORT INFORMATION
  Report Type: 
  Country: None (occurrence: None)
  Receive Date: 20070531
  Receipt Date: 20070524
  Transmission Date: 20071010
  Serious: Yes (Other)
  Sender: FDA-Public Use
  Company Number: PHNR2007AU01139

PATIENT
  Age: 24 Year
  Sex: Male

DRUGS (5)
  1. CLOZARIL [Suspect]
     Dosage: 12.5 - 600MG DAILY AT NIGHT
     Route: 048
     Dates: start: 20030526
  2. CLOZARIL [Suspect]
     Dosage: 475 MG, QD AT NIGHT
     Route: 048
  3. SOLIAN [Concomitant]
  4. EPILIM [Concomitant]
  5. LARGACTIL [Suspect]

REACTIONS (2)
  - HYPOTENSION [None]
  - VENTRICULAR DYSFUNCTION [None]
